FAERS Safety Report 6247380-2 (Version None)
Quarter: 2009Q2

REPORT INFORMATION
  Report Type: 
  Country: None (occurrence: None)
  Receive Date: 20090626
  Receipt Date: 20090618
  Transmission Date: 20091009
  Serious: Yes (Other)
  Sender: FDA-Public Use
  Company Number: B0580406A

PATIENT
  Sex: Male
  Weight: 75 kg

DRUGS (1)
  1. AUGMENTIN [Suspect]
     Indication: TONSILLITIS BACTERIAL
     Route: 048
     Dates: start: 20090521

REACTIONS (1)
  - PSORIASIS [None]
